FAERS Safety Report 20326893 (Version 6)
Quarter: 2022Q1

REPORT INFORMATION
  Report Type: Report from Study
  Country: US (occurrence: US)
  Receive Date: 20220112
  Receipt Date: 20220322
  Transmission Date: 20220424
  Serious: No
  Sender: FDA-Public Use
  Company Number: US-DSJP-DSU-2022-100763AA

PATIENT
  Sex: Female

DRUGS (2)
  1. PEXIDARTINIB [Suspect]
     Active Substance: PEXIDARTINIB
     Indication: Connective tissue neoplasm
     Dosage: 200 MG, BID
     Route: 048
     Dates: start: 20211230
  2. PEXIDARTINIB [Suspect]
     Active Substance: PEXIDARTINIB
     Indication: Soft tissue neoplasm
     Dosage: 400 MG, BID
     Route: 048
     Dates: start: 20211230

REACTIONS (10)
  - Periorbital swelling [Recovered/Resolved]
  - Muscle strain [Recovered/Resolved]
  - Musculoskeletal discomfort [Unknown]
  - Dyschezia [Unknown]
  - Constipation [Unknown]
  - Urinary tract infection [Recovered/Resolved]
  - Fatigue [Recovered/Resolved]
  - Product dose omission issue [Recovered/Resolved]
  - Hair colour changes [Recovered/Resolved]
  - Liver function test increased [Recovered/Resolved]
